FAERS Safety Report 23851328 (Version 1)
Quarter: 2024Q2

REPORT INFORMATION
  Report Type: Other
  Country: CN (occurrence: None)
  Receive Date: 20240514
  Receipt Date: 20240514
  Transmission Date: 20240716
  Serious: Yes (Death)
  Sender: FDA-Public Use
  Company Number: CN-ROCHE-3561060

PATIENT

DRUGS (3)
  1. MYCOPHENOLATE MOFETIL [Suspect]
     Active Substance: MYCOPHENOLATE MOFETIL
     Indication: Prophylaxis against graft versus host disease
     Dosage: AT A DOSE OF 0.5G TO1G FROM DAY+1 TO DAY+40.
     Route: 048
  2. CYCLOPHOSPHAMIDE [Suspect]
     Active Substance: CYCLOPHOSPHAMIDE
     Indication: Prophylaxis against graft versus host disease
     Dosage: FOR 2 DAYS
     Route: 065
  3. TACROLIMUS [Suspect]
     Active Substance: TACROLIMUS
     Indication: Prophylaxis against graft versus host disease
     Dosage: STARTING FROM DAY+1
     Route: 048

REACTIONS (11)
  - Pneumonia [Fatal]
  - Pneumonia fungal [Fatal]
  - Septic shock [Fatal]
  - Cytomegalovirus infection [Unknown]
  - Cytomegalovirus viraemia [Recovered/Resolved]
  - Epstein-Barr virus infection reactivation [Unknown]
  - Epstein-Barr viraemia [Unknown]
  - Cytomegalovirus infection reactivation [Unknown]
  - Cytomegalovirus enteritis [Unknown]
  - Pneumonia cytomegaloviral [Unknown]
  - Cytomegalovirus chorioretinitis [Unknown]
